FAERS Safety Report 15629729 (Version 2)
Quarter: 2018Q4

REPORT INFORMATION
  Report Type: Spontaneous
  Country: BR (occurrence: BR)
  Receive Date: 20181117
  Receipt Date: 20181122
  Transmission Date: 20190205
  Serious: Yes (Other)
  Sender: FDA-Public Use
  Company Number: BR-ROCHE-2212298

PATIENT
  Sex: Female

DRUGS (2)
  1. CAPECITABINE. [Suspect]
     Active Substance: CAPECITABINE
     Indication: NEOPLASM MALIGNANT
     Dosage: DURING 14 DAYS EVERY 21 DAYS
     Route: 048
     Dates: start: 20160614
  2. PEMBROLIZUMAB. [Suspect]
     Active Substance: PEMBROLIZUMAB
     Indication: NEOPLASM MALIGNANT
     Route: 042
     Dates: start: 20161010

REACTIONS (4)
  - Lymphatic disorder [Unknown]
  - Necrosis [Unknown]
  - Tumour invasion [Unknown]
  - Ill-defined disorder [Unknown]
